FAERS Safety Report 19698370 (Version 1)
Quarter: 2021Q3

REPORT INFORMATION
  Report Type: Report from Study
  Country: CA (occurrence: CA)
  Receive Date: 20210813
  Receipt Date: 20210813
  Transmission Date: 20211014
  Serious: Yes (Hospitalization)
  Sender: FDA-Public Use
  Company Number: CA-PFIZER INC-202100991550

PATIENT
  Age: 10 Year
  Sex: Female
  Weight: 32 kg

DRUGS (15)
  1. METHOTREXATE SODIUM. [Suspect]
     Active Substance: METHOTREXATE SODIUM
     Indication: ACUTE LYMPHOCYTIC LEUKAEMIA
     Dosage: 15 MG, WEEKLY
     Route: 037
     Dates: start: 20210615
  2. MERCAPTOPURINE. [Suspect]
     Active Substance: MERCAPTOPURINE
     Indication: ACUTE LYMPHOCYTIC LEUKAEMIA
     Dosage: 69 MG, 1X/DAY TABLET
     Route: 048
     Dates: start: 20210615
  3. DEXAMETHASONE. [Suspect]
     Active Substance: DEXAMETHASONE
     Indication: ACUTE LYMPHOCYTIC LEUKAEMIA
     Dosage: 3.4 MG, 2X/DAY, TABLET DAYS 4?24 (ORAL OR IV)
     Dates: start: 20210514
  4. VINCRISTINE SULFATE. [Suspect]
     Active Substance: VINCRISTINE SULFATE
     Indication: ACUTE LYMPHOCYTIC LEUKAEMIA
     Dosage: 1.7 MG, 1X/DAY, DAYS 4, 11, 25
     Route: 042
     Dates: start: 20210514
  5. CYTARABINE. [Suspect]
     Active Substance: CYTARABINE
     Indication: ACUTE LYMPHOCYTIC LEUKAEMIA
     Dosage: 40 MG, DAY 8, MILLIGRAM/SQ
     Route: 037
     Dates: start: 20210514
  6. CYTARABINE. [Suspect]
     Active Substance: CYTARABINE
     Dosage: 40 MG, DAYS 1?4 AND 8?11, MILLIGRAM/SQ
     Route: 042
     Dates: start: 20210615
  7. PEGASPARGASE [Suspect]
     Active Substance: PEGASPARGASE
     Dosage: 2760 IU, DAY 16, IU/M2
     Route: 042
     Dates: start: 20210630
  8. CYCLOPHOSPHAMIDE. [Suspect]
     Active Substance: CYCLOPHOSPHAMIDE
     Indication: ACUTE LYMPHOCYTIC LEUKAEMIA
     Dosage: 1100 MG DAY 1
     Route: 042
     Dates: start: 20210615
  9. VINCRISTINE SULFATE. [Suspect]
     Active Substance: VINCRISTINE SULFATE
     Dosage: 1.65 MG, 1X/DAY, DAYS 15 AND 22
     Route: 042
     Dates: start: 20210629
  10. INCB018424 [Suspect]
     Active Substance: RUXOLITINIB
     Indication: ACUTE LYMPHOCYTIC LEUKAEMIA
     Dosage: 55 MG, 2X/DAY TABLET
     Route: 048
     Dates: start: 20210615
  11. PEGASPARGASE [Suspect]
     Active Substance: PEGASPARGASE
     Indication: ACUTE LYMPHOCYTIC LEUKAEMIA
     Dosage: 2850 MG, DAY 6, IU/M2
     Route: 042
     Dates: start: 20210514
  12. DOXORUBICIN HCL [Suspect]
     Active Substance: DOXORUBICIN HYDROCHLORIDE
     Indication: ACUTE LYMPHOCYTIC LEUKAEMIA
     Dosage: 34 MG, 1X/DAY DAYS 4 AND 5
     Route: 042
     Dates: start: 20210514
  13. DEXRAZOXANE. [Concomitant]
     Active Substance: DEXRAZOXANE
     Dosage: 340 MG, 1X/DAY, DAY 4 AND DAY 5
     Route: 042
     Dates: start: 20210514, end: 20210607
  14. MELATONINE [Concomitant]
     Active Substance: MELATONIN
     Dosage: UNK
     Dates: start: 20210704
  15. ONDANSETRON [Concomitant]
     Active Substance: ONDANSETRON
     Dosage: UNK
     Dates: start: 20210708, end: 20210708

REACTIONS (1)
  - Neutropenic colitis [Recovered/Resolved]

NARRATIVE: CASE EVENT DATE: 20210708
